FAERS Safety Report 4984724-3 (Version None)
Quarter: 2006Q2

REPORT INFORMATION
  Report Type: 
  Country: None (occurrence: None)
  Receive Date: 20060427
  Receipt Date: 20060306
  Transmission Date: 20061013
  Serious: Yes (Hospitalization, Disabling)
  Sender: FDA-Public Use
  Company Number: US-MERCK-0603USA01090

PATIENT
  Age: 58 Year
  Sex: Female
  Weight: 112 kg

DRUGS (7)
  1. VIOXX [Suspect]
     Indication: ARTHRITIS
     Route: 048
     Dates: start: 20001222, end: 20020606
  2. ASPIRIN [Concomitant]
     Route: 065
  3. ELAVIL [Concomitant]
     Route: 048
  4. PREMARIN [Concomitant]
     Route: 065
  5. PREVACID [Concomitant]
     Route: 065
  6. MOTRIN [Concomitant]
     Route: 065
  7. ZANTAC [Concomitant]
     Route: 065

REACTIONS (17)
  - ANGINA UNSTABLE [None]
  - ANXIETY [None]
  - CAROTID ARTERY DISEASE [None]
  - CEREBROVASCULAR ACCIDENT [None]
  - CHEST PAIN [None]
  - CORONARY ARTERY DISEASE [None]
  - DEPRESSION [None]
  - DIABETES MELLITUS [None]
  - DIZZINESS [None]
  - DYSPNOEA [None]
  - FIBROMYALGIA [None]
  - HEPATIC ENZYME INCREASED [None]
  - HYPERKERATOSIS [None]
  - HYPERLIPIDAEMIA [None]
  - HYPERTENSION [None]
  - NAUSEA [None]
  - PNEUMONIA [None]
